FAERS Safety Report 4572297-9 (Version None)
Quarter: 2005Q1

REPORT INFORMATION
  Report Type: 
  Country: None (occurrence: None)
  Receive Date: 20050203
  Receipt Date: 20050127
  Transmission Date: 20050727
  Serious: Yes (Hospitalization)
  Sender: FDA-Public Use
  Company Number: 2005SE00380

PATIENT
  Age: 58 Year
  Sex: Male

DRUGS (4)
  1. BLOPRESS [Suspect]
     Indication: HYPERTENSION
     Dosage: 8 MG QD PO
     Route: 048
  2. BASEN [Concomitant]
  3. NU-LOTAN [Concomitant]
  4. INSULIN [Concomitant]

REACTIONS (1)
  - RHABDOMYOLYSIS [None]
